FAERS Safety Report 19665932 (Version 1)
Quarter: 2021Q3

REPORT INFORMATION
  Report Type: Spontaneous
  Country: US (occurrence: US)
  Receive Date: 20210805
  Receipt Date: 20210805
  Transmission Date: 20211014
  Serious: No
  Sender: FDA-Public Use
  Company Number: NVSC2021US175515

PATIENT
  Sex: Female

DRUGS (1)
  1. XIIDRA [Suspect]
     Active Substance: LIFITEGRAST
     Indication: PRODUCT USED FOR UNKNOWN INDICATION
     Dosage: UNK, 1 DROP OF XIIDRA IN EACH EYE, 2 TIMES EACH DAY, ABOUT 12 HOURS APART
     Route: 065

REACTIONS (1)
  - Ocular discomfort [Unknown]
